FAERS Safety Report 4596370-4 (Version None)
Quarter: 2005Q1

REPORT INFORMATION
  Report Type: 
  Country: None (occurrence: None)
  Receive Date: 20050228
  Receipt Date: 20050214
  Transmission Date: 20050727
  Serious: Yes (Hospitalization)
  Sender: FDA-Public Use
  Company Number: 2005SE00918

PATIENT
  Age: 76 Year
  Sex: Male

DRUGS (11)
  1. ROSUVASTATIN [Suspect]
     Indication: CARDIAC FAILURE
     Dosage: 10 MG DAILY PO
     Route: 048
     Dates: start: 20040218
  2. MAREVAN [Suspect]
     Indication: MITRAL VALVE REPLACEMENT
     Dosage: 2.5 MG DAILY PO
     Route: 048
  3. MINIDIAB [Concomitant]
  4. ORABET [Concomitant]
  5. MAGNYL [Concomitant]
  6. DIGOXIN [Concomitant]
  7. SPIRON [Concomitant]
  8. COZAAR [Concomitant]
  9. SELOZOK [Concomitant]
  10. SEREVENT [Concomitant]
  11. FUROSEMIDE [Concomitant]

REACTIONS (6)
  - CONDITION AGGRAVATED [None]
  - DIABETES MELLITUS [None]
  - HAEMATEMESIS [None]
  - HAEMOGLOBIN DECREASED [None]
  - INTERNATIONAL NORMALISED RATIO INCREASED [None]
  - OESOPHAGITIS [None]
